FAERS Safety Report 17389053 (Version 6)
Quarter: 2022Q2

REPORT INFORMATION
  Report Type: Report from Study
  Country: JP (occurrence: JP)
  Receive Date: 20200207
  Receipt Date: 20220411
  Transmission Date: 20220721
  Serious: Yes (Death, Hospitalization, Disabling, Other)
  Sender: FDA-Public Use
  Company Number: JP-PFIZER INC-2020012375

PATIENT
  Age: 67 Year
  Sex: Male
  Weight: 76 kg

DRUGS (23)
  1. VYNDAQEL [Suspect]
     Active Substance: TAFAMIDIS MEGLUMINE
     Indication: Cardiac amyloidosis
     Dosage: 80 MG, 1X/DAY
     Route: 048
     Dates: start: 20190918, end: 20200115
  2. VYNDAQEL [Suspect]
     Active Substance: TAFAMIDIS MEGLUMINE
     Indication: Cardiac failure
  3. LOSARTAN POTASSIUM [Suspect]
     Active Substance: LOSARTAN POTASSIUM
     Indication: Cardiac failure
     Dosage: 25 MG, 1X/DAY
     Route: 048
     Dates: start: 20190904, end: 20200121
  4. SPIRONOLACTONE [Suspect]
     Active Substance: SPIRONOLACTONE
     Indication: Cardiac failure
     Dosage: 25 MG, 1X/DAY
     Route: 048
     Dates: start: 20190612, end: 20200121
  5. KREMEZIN [Concomitant]
     Active Substance: ACTIVATED CHARCOAL
     Indication: Chronic kidney disease
     Dosage: 2000 MG, 3X/DAY
     Route: 048
     Dates: start: 20190612
  6. BISOPROLOL FUMARATE [Concomitant]
     Active Substance: BISOPROLOL FUMARATE
     Indication: Cardiac failure
     Dosage: 3.125 MG, DAILY (1.25MG, 1.875MG, 2 TIMES DAILY)
     Route: 048
     Dates: start: 20141224
  7. BEPRIDIL [Concomitant]
     Active Substance: BEPRIDIL
     Indication: Atrial tachycardia
     Dosage: 50 MG, 2X/DAY
     Route: 048
     Dates: start: 20160302
  8. BEPRIDIL [Concomitant]
     Active Substance: BEPRIDIL
     Dosage: 50 MG, DAILY
     Route: 048
     Dates: start: 20200111
  9. TRICHLORMETHIAZIDE TAIYO [Concomitant]
     Indication: Cardiac failure
     Dosage: 4 MG, 1X/DAY
     Route: 048
     Dates: start: 20170405
  10. TRICHLORMETHIAZIDE NP [Concomitant]
     Indication: Cardiac failure
     Dosage: 1 MG, 1X/DAY
     Route: 048
     Dates: start: 20180822
  11. TRICHLORMETHIAZIDE NP [Concomitant]
     Dosage: 3 MG, UNK
     Dates: end: 20191210
  12. TRICHLORMETHIAZIDE NP [Concomitant]
     Dosage: 4 MG, UNK
     Dates: start: 20191211
  13. TRICHLORMETHIAZIDE NP [Concomitant]
     Dosage: 1 MG, UNK
     Dates: start: 20200111
  14. CALCIUM POLYSTYRENE SULFONATE [Concomitant]
     Active Substance: CALCIUM POLYSTYRENE SULFONATE
     Indication: Hyperkalaemia
     Dosage: 25 G, 2X/DAY
     Route: 048
     Dates: start: 20170802, end: 20200130
  15. SAMSCA [Concomitant]
     Active Substance: TOLVAPTAN
     Indication: Cardiac failure
     Dosage: 7.5 MG, UNK
     Dates: start: 20190403
  16. SAMSCA [Concomitant]
     Active Substance: TOLVAPTAN
     Dosage: 11.25 MG, UNK
     Dates: start: 20190807, end: 20191001
  17. SAMSCA [Concomitant]
     Active Substance: TOLVAPTAN
     Dosage: 15 MG, 1X/DAY
     Route: 048
     Dates: start: 20191002
  18. NEXIUM [Concomitant]
     Active Substance: ESOMEPRAZOLE MAGNESIUM
     Indication: Gastritis
     Dosage: 20 MG, 1X/DAY
     Route: 048
     Dates: start: 20190417
  19. PIMOBENDAN [Concomitant]
     Active Substance: PIMOBENDAN
     Indication: Cardiac failure
     Dosage: 0.625 MG, 2X/DAY
     Route: 048
     Dates: start: 20191127
  20. ASTAXANTHIN [Concomitant]
     Active Substance: ASTAXANTHIN
     Dosage: UNK
     Dates: start: 20190206, end: 20200108
  21. LINZESS [Concomitant]
     Active Substance: LINACLOTIDE
     Dosage: UNK
     Route: 048
     Dates: start: 20191016
  22. CARPERITIDE [Concomitant]
     Active Substance: CARPERITIDE
     Dosage: UNK
     Dates: start: 20200109, end: 20200113
  23. FUROSEMIDE [Concomitant]
     Active Substance: FUROSEMIDE
     Dosage: UNK
     Route: 048
     Dates: start: 20200111, end: 20200114

REACTIONS (3)
  - Cardiac failure [Fatal]
  - Renal impairment [Recovering/Resolving]
  - Hyperkalaemia [Recovered/Resolved]

NARRATIVE: CASE EVENT DATE: 20191001
